FAERS Safety Report 9287352 (Version 3)
Quarter: 2013Q4

REPORT INFORMATION
  Report Type: Spontaneous
  Country: AR (occurrence: AR)
  Receive Date: 20130514
  Receipt Date: 20131025
  Transmission Date: 20140711
  Serious: Yes (Other)
  Sender: FDA-Public Use
  Company Number: AR-AMGEN-ARGSP2013033239

PATIENT
  Age: 68 Year
  Sex: Female

DRUGS (2)
  1. ENBREL [Suspect]
     Indication: RHEUMATOID ARTHRITIS
     Dosage: 25 MG, QWK
     Route: 065
     Dates: start: 20061206, end: 2012
  2. ENBREL [Suspect]
     Dosage: 25 MG, WEEKLY
     Route: 065
     Dates: start: 2012, end: 201303

REACTIONS (1)
  - Rheumatoid arthritis [Not Recovered/Not Resolved]
